FAERS Safety Report 14496385 (Version 1)
Quarter: 2018Q1

REPORT INFORMATION
  Report Type: Spontaneous
  Country: US (occurrence: US)
  Receive Date: 20180207
  Receipt Date: 20180207
  Transmission Date: 20180509
  Serious: Yes (Death)
  Sender: FDA-Public Use
  Company Number: US-INCYTE CORPORATION-2018IN001018

PATIENT

DRUGS (2)
  1. JAKAFI [Suspect]
     Active Substance: RUXOLITINIB
     Indication: MYELOFIBROSIS
     Dosage: UNK
     Route: 065
  2. JAKAFI [Suspect]
     Active Substance: RUXOLITINIB
     Indication: MYELODYSPLASTIC SYNDROME
     Dosage: 5 MG, BID
     Route: 065

REACTIONS (9)
  - Mediastinal haematoma [Fatal]
  - Dysponesis [Fatal]
  - Haemoptysis [Fatal]
  - Refractory cytopenia with unilineage dysplasia [Fatal]
  - Respiratory arrest [Fatal]
  - Chronic myelomonocytic leukaemia [Fatal]
  - Malignant neoplasm progression [Fatal]
  - Therapy non-responder [Unknown]
  - Marrow hyperplasia [Fatal]
